FAERS Safety Report 18791149 (Version 2)
Quarter: 2021Q1

REPORT INFORMATION
  Report Type: Report from Study
  Country: GB (occurrence: GB)
  Receive Date: 20210126
  Receipt Date: 20210302
  Transmission Date: 20210419
  Serious: Yes (Other)
  Sender: FDA-Public Use
  Company Number: GB-TAKEDA-2020TUS047948

PATIENT
  Age: 79 Year
  Sex: Female

DRUGS (3)
  1. VELAGLUCERASE ALFA [Suspect]
     Active Substance: VELAGLUCERASE ALFA
     Indication: GAUCHER^S DISEASE
     Dosage: 1600 INTERNATIONAL UNIT, Q2WEEKS
     Route: 042
     Dates: start: 20150903
  2. VELAGLUCERASE ALFA [Suspect]
     Active Substance: VELAGLUCERASE ALFA
     Dosage: 1600 INTERNATIONAL UNIT, FORTNIGHTLY
     Route: 042
  3. VELAGLUCERASE ALFA [Suspect]
     Active Substance: VELAGLUCERASE ALFA
     Indication: HEREDITARY ANGIOEDEMA
     Dosage: 30 MILLIGRAM
     Route: 058

REACTIONS (11)
  - Haematochezia [Unknown]
  - Poor venous access [Unknown]
  - Product dose omission issue [Unknown]
  - Mass [Recovered/Resolved]
  - Flushing [Unknown]
  - Pollakiuria [Unknown]
  - Infusion site pain [Unknown]
  - Abdominal pain [Unknown]
  - Hypertension [Unknown]
  - Flatulence [Unknown]
  - Diverticulitis [Unknown]
